FAERS Safety Report 23070168 (Version 1)
Quarter: 2023Q4

REPORT INFORMATION
  Report Type: Spontaneous
  Country: US (occurrence: US)
  Receive Date: 20231016
  Receipt Date: 20231016
  Transmission Date: 20240109
  Serious: Yes (Other)
  Sender: FDA-Public Use
  Company Number: US-PFIZER INC-202300320588

PATIENT
  Age: 63 Year
  Sex: Female
  Weight: 77.11 kg

DRUGS (1)
  1. GLYBURIDE [Suspect]
     Active Substance: GLYBURIDE
     Indication: Diabetes mellitus
     Dosage: UNK
     Dates: start: 202304, end: 202306

REACTIONS (12)
  - Neuropathy peripheral [Recovered/Resolved]
  - Disease recurrence [Recovered/Resolved]
  - Retinal detachment [Unknown]
  - Blindness [Unknown]
  - Macular degeneration [Not Recovered/Not Resolved]
  - Cataract [Not Recovered/Not Resolved]
  - Diabetic retinopathy [Recovered/Resolved]
  - Disease recurrence [Recovered/Resolved]
  - Muscle spasms [Not Recovered/Not Resolved]
  - Visual impairment [Unknown]
  - Loss of personal independence in daily activities [Unknown]
  - Middle insomnia [Unknown]
